FAERS Safety Report 10159670 (Version 1)
Quarter: 2014Q2

REPORT INFORMATION
  Report Type: Spontaneous
  Country: PL (occurrence: None)
  Receive Date: 20140506
  Receipt Date: 20140506
  Transmission Date: 20141212
  Serious: Yes (Other)
  Sender: FDA-Public Use
  Company Number: FK201401530

PATIENT
  Age: 6 Week
  Sex: Female

DRUGS (6)
  1. PROPRANOLOL HYDROCHLORIDE [Suspect]
     Indication: HAEMANGIOMA-THROMBOCYTOPENIA SYNDROME
     Dosage: 1 MG/KG, STARTING DOSE, UNKNOWN
  2. PROPRANOLOL HYDROCHLORIDE [Suspect]
     Indication: INTRAVASCULAR PAPILLARY ENDOTHELIAL HYPERPLASIA
     Dosage: 1 MG/KG, STARTING DOSE, UNKNOWN
  3. PLATELETS (PLATELETS) [Concomitant]
  4. FRESH FROZEN PLASMA (PLASMA) [Concomitant]
  5. BLOOD AND RELATED PRODUCTS (BLOOD AND RELATED PRODUCTS) [Concomitant]
  6. BLOOD AND RELATED PRODUCTS (PLATELETS, CONCENTRATED) [Concomitant]

REACTIONS (1)
  - Weight gain poor [None]
